FAERS Safety Report 13562985 (Version 1)
Quarter: 2017Q2

REPORT INFORMATION
  Report Type: Spontaneous
  Country: US (occurrence: US)
  Receive Date: 20170518
  Receipt Date: 20170518
  Transmission Date: 20170830
  Serious: Yes (Hospitalization)
  Sender: FDA-Public Use
  Company Number: None

PATIENT
  Age: 71 Year
  Sex: Female
  Weight: 69.4 kg

DRUGS (1)
  1. VIBERZI [Suspect]
     Active Substance: ELUXADOLINE
     Indication: IRRITABLE BOWEL SYNDROME
     Route: 048
     Dates: start: 20170509

REACTIONS (7)
  - Chest pain [None]
  - Blood alkaline phosphatase increased [None]
  - Pancreatitis acute [None]
  - Abdominal pain upper [None]
  - Aspartate aminotransferase increased [None]
  - Blood potassium decreased [None]
  - Alanine aminotransferase increased [None]

NARRATIVE: CASE EVENT DATE: 20170509
